FAERS Safety Report 7241775-6 (Version None)
Quarter: 2011Q1

REPORT INFORMATION
  Report Type: 
  Country: None (occurrence: None)
  Receive Date: 20110124
  Receipt Date: 20110113
  Transmission Date: 20110831
  Serious: Yes (Hospitalization)
  Sender: FDA-Public Use
  Company Number: IT-ASTRAZENECA-2010SE57582

PATIENT
  Age: 27411 Day
  Sex: Female

DRUGS (7)
  1. GENTAMICIN [Concomitant]
     Route: 042
  2. AZATHIOPRINE [Concomitant]
     Route: 048
  3. AMIODARONE [Concomitant]
  4. ACETYLSALICYLIC ACID [Concomitant]
     Route: 048
  5. MERREM [Suspect]
     Route: 042
     Dates: start: 20101119, end: 20101123
  6. PREDNISONE [Concomitant]
     Route: 048
  7. PANTOPRAZOLE [Concomitant]
     Route: 048

REACTIONS (7)
  - TYPE 2 DIABETES MELLITUS [None]
  - ATRIAL FIBRILLATION [None]
  - HEPATITIS [None]
  - RHABDOMYOLYSIS [None]
  - CARDIAC FAILURE [None]
  - ESCHERICHIA URINARY TRACT INFECTION [None]
  - HYPERTRANSAMINASAEMIA [None]
